FAERS Safety Report 22118886 (Version 1)
Quarter: 2023Q1

REPORT INFORMATION
  Report Type: Report from Study
  Country: US (occurrence: US)
  Receive Date: 20230321
  Receipt Date: 20230321
  Transmission Date: 20230417
  Serious: Yes (Other)
  Sender: FDA-Public Use
  Company Number: US-MYLANLABS-2023M1029740

PATIENT
  Age: 60 Year
  Sex: Male

DRUGS (1)
  1. CLOZAPINE [Suspect]
     Active Substance: CLOZAPINE
     Indication: Product used for unknown indication
     Dosage: 800 MILLIGRAM, TID, (3 TIMES A DAY )
     Route: 065

REACTIONS (5)
  - Jaw fracture [Unknown]
  - Lung neoplasm malignant [Unknown]
  - Suicide attempt [Unknown]
  - Neutropenia [Unknown]
  - Lower limb fracture [Unknown]

NARRATIVE: CASE EVENT DATE: 20230301
